FAERS Safety Report 6596641-6 (Version None)
Quarter: 2010Q1

REPORT INFORMATION
  Report Type: 
  Country: None (occurrence: None)
  Receive Date: 20100222
  Receipt Date: 20100222
  Transmission Date: 20100710
  Serious: Yes (Other)
  Sender: FDA-Public Use
  Company Number: None

PATIENT
  Age: 9 Year
  Sex: Female
  Weight: 45.3597 kg

DRUGS (2)
  1. LORTAB [Suspect]
     Indication: FOOT FRACTURE
     Dosage: 5 5-6 HRS PO
     Route: 048
     Dates: start: 20100219, end: 20100219
  2. LORTAB [Suspect]
     Indication: PAIN
     Dosage: 5 5-6 HRS PO
     Route: 048
     Dates: start: 20100219, end: 20100219

REACTIONS (3)
  - PRODUCT LABEL ISSUE [None]
  - PRODUCT ODOUR ABNORMAL [None]
  - VOMITING PROJECTILE [None]
